FAERS Safety Report 6051167-3 (Version None)
Quarter: 2009Q1

REPORT INFORMATION
  Report Type: 
  Country: None (occurrence: None)
  Receive Date: 20090121
  Receipt Date: 20080924
  Transmission Date: 20090719
  Serious: Yes (Death, Hospitalization, Other)
  Sender: FDA-Public Use
  Company Number: 200809AGG00833

PATIENT
  Age: 71 Year
  Sex: Female
  Weight: 61 kg

DRUGS (4)
  1. AGGRASTAT [Suspect]
     Indication: CARDIOVASCULAR EVENT PROPHYLAXIS
     Dosage: 0.25  MG/ML INTRAVENOUS
     Route: 042
     Dates: start: 20080721, end: 20080722
  2. PLAVIX [Concomitant]
  3. HEPARIN SODIUM [Concomitant]
  4. ENOXAPARIN SODIUM [Concomitant]

REACTIONS (6)
  - ACUTE MYOCARDIAL INFARCTION [None]
  - DISEASE RECURRENCE [None]
  - HAEMORRHAGIC DIATHESIS [None]
  - RENAL FAILURE [None]
  - RESPIRATORY FAILURE [None]
  - THROMBOCYTOPENIA [None]
